FAERS Safety Report 19354746 (Version 2)
Quarter: 2021Q3

REPORT INFORMATION
  Report Type: Report from Study
  Country: US (occurrence: US)
  Receive Date: 20210602
  Receipt Date: 20210707
  Transmission Date: 20211014
  Serious: No
  Sender: FDA-Public Use
  Company Number: US-TAIHO ONCOLOGY  INC-EU-2021-01455

PATIENT
  Age: 57 Year
  Sex: Female
  Weight: 59.02 kg

DRUGS (25)
  1. CYCLOBENZAPRINE. [Concomitant]
     Active Substance: CYCLOBENZAPRINE
  2. PERCOCET [Concomitant]
     Active Substance: ACETAMINOPHEN\OXYCODONE HYDROCHLORIDE
  3. PROAIR HFA [Concomitant]
     Active Substance: ALBUTEROL SULFATE
  4. SUCRALFATE. [Concomitant]
     Active Substance: SUCRALFATE
  5. ASPIRIN. [Concomitant]
     Active Substance: ASPIRIN
  6. CROMOLYN [Concomitant]
     Active Substance: CROMOLYN
  7. DICLOFENAC [Concomitant]
     Active Substance: DICLOFENAC
  8. NICOTINE. [Concomitant]
     Active Substance: NICOTINE
  9. LONSURF [Suspect]
     Active Substance: TIPIRACIL HYDROCHLORIDE\TRIFLURIDINE
     Indication: COLON CANCER
     Dosage: CYCLE 1 TO 3
     Route: 048
     Dates: start: 202101
  10. POTASSIUM CHLORIDE. [Concomitant]
     Active Substance: POTASSIUM CHLORIDE
  11. LEVOTHYROXINE. [Concomitant]
     Active Substance: LEVOTHYROXINE
  12. ADVAIR DISKUS [Concomitant]
     Active Substance: FLUTICASONE PROPIONATE\SALMETEROL XINAFOATE
  13. FUROSEMIDE. [Concomitant]
     Active Substance: FUROSEMIDE
  14. OMEPRAZOLE. [Concomitant]
     Active Substance: OMEPRAZOLE
  15. ONDANSETRON [Concomitant]
     Active Substance: ONDANSETRON
  16. SENOKOT [Concomitant]
     Active Substance: SENNOSIDES
  17. SPIRIVA [Concomitant]
     Active Substance: TIOTROPIUM BROMIDE MONOHYDRATE
  18. MIRTAZAPINE. [Concomitant]
     Active Substance: MIRTAZAPINE
  19. RISPERIDONE. [Concomitant]
     Active Substance: RISPERIDONE
  20. METOLAZONE. [Concomitant]
     Active Substance: METOLAZONE
  21. MULTIVITAMINS [Concomitant]
     Active Substance: VITAMINS
  22. ALBUTEROL. [Concomitant]
     Active Substance: ALBUTEROL
  23. ALLEGRA [Concomitant]
     Active Substance: FEXOFENADINE HYDROCHLORIDE
  24. ELIQUIS [Concomitant]
     Active Substance: APIXABAN
  25. LYRICA [Concomitant]
     Active Substance: PREGABALIN

REACTIONS (1)
  - Disease progression [Unknown]

NARRATIVE: CASE EVENT DATE: 2021
